FAERS Safety Report 18411571 (Version 1)
Quarter: 2020Q4

REPORT INFORMATION
  Report Type: Report from Study
  Country: GB (occurrence: GB)
  Receive Date: 20201021
  Receipt Date: 20201021
  Transmission Date: 20210114
  Serious: Yes (Other)
  Sender: FDA-Public Use
  Company Number: GB-MYLANLABS-2020M1088396

PATIENT
  Sex: Male

DRUGS (6)
  1. PREGABALIN. [Concomitant]
     Active Substance: PREGABALIN
     Dosage: UNK
  2. AMITRIPTYLINE [Concomitant]
     Active Substance: AMITRIPTYLINE
  3. BRABIO 40 MG/ML SOLUTION FOR INJECTION, PRE-FILLED-SYRINGE [Suspect]
     Active Substance: GLATIRAMER ACETATE
     Indication: MULTIPLE SCLEROSIS
     Dosage: 40 MILLIGRAM, 3XW
     Route: 058
     Dates: start: 201907
  4. DIAZEPAM. [Concomitant]
     Active Substance: DIAZEPAM
     Dosage: UNK
  5. MIGRALEVE PINK [Concomitant]
     Indication: HEADACHE
     Dosage: UNK
  6. MIGRALEVE YELLOW [Concomitant]
     Indication: HEADACHE
     Dosage: UNK

REACTIONS (3)
  - Multiple sclerosis [Unknown]
  - Cyst [Unknown]
  - Product dose omission issue [Unknown]
